FAERS Safety Report 6966916-7 (Version None)
Quarter: 2010Q3

REPORT INFORMATION
  Report Type: 
  Country: None (occurrence: None)
  Receive Date: 20100906
  Receipt Date: 20100902
  Transmission Date: 20110219
  Serious: Yes (Death, Hospitalization, Other)
  Sender: FDA-Public Use
  Company Number: PHHY2009JP22497

PATIENT
  Sex: Female

DRUGS (11)
  1. TASIGNA [Suspect]
     Indication: CHRONIC MYELOID LEUKAEMIA
     Dosage: 400 MG DAILY
     Route: 048
     Dates: start: 20090407, end: 20090427
  2. TASIGNA [Suspect]
     Dosage: 400 MG DAILY
     Route: 048
     Dates: start: 20090512, end: 20090608
  3. TASIGNA [Suspect]
     Dosage: 400 MG DAILY
     Route: 048
     Dates: start: 20090630, end: 20090810
  4. TASIGNA [Suspect]
     Dosage: 400 MG DAILY
     Route: 048
     Dates: start: 20090831, end: 20090914
  5. TASIGNA [Suspect]
     Dosage: 400 MG DAILY
     Route: 048
     Dates: start: 20091005, end: 20091014
  6. DASATINIB [Suspect]
  7. ALDACTONE [Concomitant]
     Dosage: 25 MG, UNK
     Route: 048
     Dates: start: 20020318, end: 20091020
  8. LOXONIN [Concomitant]
     Indication: CHRONIC MYELOID LEUKAEMIA
     Dosage: 60 MG, UNK
     Route: 048
     Dates: start: 20090622, end: 20091020
  9. LOXONIN [Concomitant]
     Indication: PYREXIA
  10. PARIET [Concomitant]
     Dosage: 10 MG, UNK
     Route: 048
     Dates: start: 20090706, end: 20091020
  11. ZYLORIC [Concomitant]
     Indication: HYPERURICAEMIA
     Dosage: 100 MG, UNK
     Route: 048
     Dates: start: 20090727, end: 20091020

REACTIONS (10)
  - CHRONIC MYELOID LEUKAEMIA TRANSFORMATION [None]
  - DRAIN REMOVAL [None]
  - DRUG INEFFECTIVE [None]
  - HAEMOGLOBIN DECREASED [None]
  - LEUKOPENIA [None]
  - OEDEMA PERIPHERAL [None]
  - PLATELET COUNT DECREASED [None]
  - PLEURAL EFFUSION [None]
  - PNEUMONIA [None]
  - SUBDURAL HAEMATOMA [None]
